FAERS Safety Report 16588918 (Version 1)
Quarter: 2019Q3

REPORT INFORMATION
  Report Type: Spontaneous
  Country: DE (occurrence: DE)
  Receive Date: 20190718
  Receipt Date: 20190718
  Transmission Date: 20191004
  Serious: Yes (Hospitalization, Other)
  Sender: FDA-Public Use
  Company Number: DE-AUROBINDO-AUR-APL-2019-040416

PATIENT

DRUGS (2)
  1. AMOXI-CLAVULAN [Concomitant]
     Indication: PRODUCT USED FOR UNKNOWN INDICATION
     Dosage: 875|125 MG, 1-0-1; BIS 28.01.2017, TABLETTEN
     Route: 048
     Dates: start: 20170128
  2. IBUPROFEN FILM-COATED TABLETS [Suspect]
     Active Substance: IBUPROFEN
     Indication: PRODUCT USED FOR UNKNOWN INDICATION
     Dosage: 600 MILLIGRAM, 4 TIMES A DAY
     Route: 048
     Dates: start: 20170128

REACTIONS (6)
  - Palpitations [Unknown]
  - Fatigue [Unknown]
  - Melaena [Unknown]
  - Off label use [Unknown]
  - Dizziness [Unknown]
  - Product prescribing error [Unknown]

NARRATIVE: CASE EVENT DATE: 20170125
